FAERS Safety Report 8158232-5 (Version None)
Quarter: 2012Q1

REPORT INFORMATION
  Report Type: 
  Country: None (occurrence: None)
  Receive Date: 20120223
  Receipt Date: 20120211
  Transmission Date: 20120608
  Serious: Yes (Hospitalization)
  Sender: FDA-Public Use
  Company Number: GR-PAR PHARMACEUTICAL, INC-2012SCPR004213

PATIENT

DRUGS (2)
  1. BETA BLOCKING AGENTS [Concomitant]
     Indication: HYPERTENSION
     Dosage: UNK, UNKNOWN
     Route: 065
  2. FLUTAMIDE [Suspect]
     Indication: PROSTATE CANCER
     Dosage: UNK, UNKNOWN
     Route: 065

REACTIONS (3)
  - HEPATOTOXICITY [None]
  - HEPATOCELLULAR INJURY [None]
  - CHOLESTATIC LIVER INJURY [None]
